FAERS Safety Report 10724551 (Version 3)
Quarter: 2015Q2

REPORT INFORMATION
  Report Type: Spontaneous
  Country: US (occurrence: US)
  Receive Date: 20150120
  Receipt Date: 20150605
  Transmission Date: 20150821
  Serious: Yes (Hospitalization, Other)
  Sender: FDA-Public Use
  Company Number: US-GLAXOSMITHKLINE-US2014GSK047538

PATIENT
  Sex: Female

DRUGS (1)
  1. PROMACTA [Suspect]
     Active Substance: ELTROMBOPAG OLAMINE
     Indication: THROMBOCYTOPENIA
     Dosage: 25 MG, BID
     Route: 065
     Dates: start: 20090529

REACTIONS (5)
  - Hospitalisation [Unknown]
  - Blood pressure decreased [Unknown]
  - Vascular rupture [Unknown]
  - Fall [Unknown]
  - Spinal column injury [Unknown]
